FAERS Safety Report 5158811-3 (Version None)
Quarter: 2006Q4

REPORT INFORMATION
  Report Type: 
  Country: None (occurrence: None)
  Receive Date: 20061128
  Receipt Date: 20060711
  Transmission Date: 20070319
  Serious: Yes (Hospitalization, Other)
  Sender: FDA-Public Use
  Company Number: CA-ELI_LILLY_AND_COMPANY-CA200607002459

PATIENT
  Age: 73 Year
  Sex: Female

DRUGS (1)
  1. FORTEO [Suspect]
     Indication: OSTEOPOROSIS
     Dosage: 20 UG, DAILY (1/D)
     Dates: start: 20060710, end: 20060710

REACTIONS (5)
  - ABDOMINAL PAIN UPPER [None]
  - ARRHYTHMIA [None]
  - DIZZINESS [None]
  - HEART INJURY [None]
  - PALPITATIONS [None]
